FAERS Safety Report 19964238 (Version 1)
Quarter: 2021Q4

REPORT INFORMATION
  Report Type: Spontaneous
  Country: US (occurrence: US)
  Receive Date: 20211018
  Receipt Date: 20211018
  Transmission Date: 20220303
  Serious: No
  Sender: FDA-Public Use
  Company Number: US-TAKEDA-ALL1-2014-00723

PATIENT
  Age: 24 Year
  Sex: Male
  Weight: 77 kg

DRUGS (2)
  1. LIALDA [Suspect]
     Active Substance: MESALAMINE
     Indication: Colitis ulcerative
     Dosage: 2.4 G (TWO 1.2 G TABLETS), 2X/DAY:BID
     Route: 048
  2. LIALDA [Suspect]
     Active Substance: MESALAMINE
     Dosage: 1.2 GRAM, BID
     Route: 048

REACTIONS (4)
  - Joint dislocation [Not Recovered/Not Resolved]
  - Tinnitus [Unknown]
  - Loss of personal independence in daily activities [Unknown]
  - Product prescribing error [Not Recovered/Not Resolved]

NARRATIVE: CASE EVENT DATE: 20130401
